FAERS Safety Report 20854439 (Version 1)
Quarter: 2022Q2

REPORT INFORMATION
  Report Type: Spontaneous
  Country: US (occurrence: None)
  Receive Date: 20220519
  Receipt Date: 20220519
  Transmission Date: 20220721
  Serious: No
  Sender: FDA-Public Use
  Company Number: None

PATIENT
  Sex: Male
  Weight: 68.95 kg

DRUGS (16)
  1. CAPECITABINE [Suspect]
     Active Substance: CAPECITABINE
     Indication: Colon cancer
     Dosage: FREQUENCY : TWICE A DAY;?
     Route: 048
  2. RITUXAN [Concomitant]
     Active Substance: RITUXIMAB
  3. OXALIPLATIN [Concomitant]
     Active Substance: OXALIPLATIN
  4. ERBITUX IV [Concomitant]
  5. VENOFER [Concomitant]
  6. AVASTIN [Concomitant]
     Active Substance: BEVACIZUMAB
  7. CHOLESTYRAMINE LIGHT [Concomitant]
     Active Substance: CHOLESTYRAMINE
  8. CLINDAMYCIN PHOSPHATE EX [Concomitant]
  9. CRESTOR [Concomitant]
     Active Substance: ROSUVASTATIN CALCIUM
  10. DULCOLAX NOS [Concomitant]
     Active Substance: BISACODYL OR DOCUSATE SODIUM
  11. TAMSULOSIN [Concomitant]
     Active Substance: TAMSULOSIN
  12. VALSARTAN [Concomitant]
     Active Substance: VALSARTAN
  13. LYRICA [Concomitant]
     Active Substance: PREGABALIN
  14. AMLODIPINE [Concomitant]
     Active Substance: AMLODIPINE BESYLATE
  15. CASODEX [Concomitant]
     Active Substance: BICALUTAMIDE
  16. CRESTOR [Suspect]
     Active Substance: ROSUVASTATIN CALCIUM

REACTIONS (1)
  - Disease progression [None]
